FAERS Safety Report 16649079 (Version 2)
Quarter: 2019Q3

REPORT INFORMATION
  Report Type: Spontaneous
  Country: US (occurrence: US)
  Receive Date: 20190730
  Receipt Date: 20190917
  Transmission Date: 20191004
  Serious: Yes (Hospitalization)
  Sender: FDA-Public Use
  Company Number: US-ASTRAZENECA-2019SF07505

PATIENT
  Sex: Female
  Weight: 81.2 kg

DRUGS (8)
  1. IRON [Concomitant]
     Active Substance: IRON
     Indication: BLOOD IRON DECREASED
     Route: 048
  2. OXYGEN. [Concomitant]
     Active Substance: OXYGEN
     Dosage: NUMBER 6 DURING THE DAY AND 7 AT NIGHT BY NASAL CANNULA
  3. SYMBICORT [Suspect]
     Active Substance: BUDESONIDE\FORMOTEROL FUMARATE DIHYDRATE
     Indication: CHRONIC OBSTRUCTIVE PULMONARY DISEASE
     Dosage: 160/4.5 MCG, 2 PUFFS TWICE A DAY
     Route: 055
  4. POTASSIUM [Concomitant]
     Active Substance: POTASSIUM
  5. SPIRIVA [Concomitant]
     Active Substance: TIOTROPIUM BROMIDE MONOHYDRATE
  6. ALBUTEROL. [Concomitant]
     Active Substance: ALBUTEROL
     Indication: CHRONIC OBSTRUCTIVE PULMONARY DISEASE
     Dosage: 2 TIMES A DAY
  7. ALBUTEROL. [Concomitant]
     Active Substance: ALBUTEROL
     Indication: DYSPNOEA
     Dosage: 2 TIMES A DAY
  8. OMEPRAZOLE. [Suspect]
     Active Substance: OMEPRAZOLE
     Indication: DYSPEPSIA
     Dosage: ONCE A DAY
     Route: 048

REACTIONS (10)
  - Stomatitis [Not Recovered/Not Resolved]
  - Wrong technique in product usage process [Unknown]
  - Device dislocation [Unknown]
  - Dyspepsia [Unknown]
  - Condition aggravated [Unknown]
  - Asthenia [Unknown]
  - Blood iron decreased [Unknown]
  - Intentional device misuse [Not Recovered/Not Resolved]
  - Herpes zoster [Unknown]
  - Device malfunction [Unknown]
